FAERS Safety Report 7300673-X (Version None)
Quarter: 2011Q1

REPORT INFORMATION
  Report Type: 
  Country: None (occurrence: None)
  Receive Date: 20110207
  Receipt Date: 20110131
  Transmission Date: 20110831
  Serious: Yes (Disabling)
  Sender: FDA-Public Use
  Company Number: OSCN-NO-1102L-0049

PATIENT
  Age: 72 Year
  Sex: Male

DRUGS (1)
  1. OMNISCAN [Suspect]
     Indication: RENAL FAILURE ACUTE
     Dosage: SINGLE DOSE
     Dates: start: 20060901, end: 20060901

REACTIONS (6)
  - ASTHENIA [None]
  - LEG AMPUTATION [None]
  - POST PROCEDURAL COMPLICATION [None]
  - HAEMODIALYSIS [None]
  - NEPHROGENIC SYSTEMIC FIBROSIS [None]
  - MOBILITY DECREASED [None]
